FAERS Safety Report 24929400 (Version 1)
Quarter: 2025Q1

REPORT INFORMATION
  Report Type: Spontaneous
  Country: US (occurrence: None)
  Receive Date: 20250203
  Receipt Date: 20250203
  Transmission Date: 20250408
  Serious: Yes (Death)
  Sender: FDA-CTU
  Company Number: None

PATIENT
  Age: 84 Year
  Sex: Female
  Weight: 61.8 kg

DRUGS (1)
  1. KEYTRUDA [Suspect]
     Active Substance: PEMBROLIZUMAB
     Indication: Non-small cell lung cancer
     Route: 042
     Dates: start: 20241115

REACTIONS (7)
  - Acute myocardial infarction [None]
  - Immune-mediated myocarditis [None]
  - Apnoea [None]
  - Pulse absent [None]
  - Unresponsive to stimuli [None]
  - Dysphagia [None]
  - Coronary artery disease [None]

NARRATIVE: CASE EVENT DATE: 20241115
